FAERS Safety Report 8509349-4 (Version None)
Quarter: 2012Q3

REPORT INFORMATION
  Report Type: 
  Country: None (occurrence: None)
  Receive Date: 20120713
  Receipt Date: 20110531
  Transmission Date: 20120928
  Serious: Yes (Death)
  Sender: FDA-Public Use
  Company Number: ZA-ROCHE-1087147

PATIENT
  Sex: Male

DRUGS (3)
  1. CELLCEPT [Suspect]
     Indication: RENAL TRANSPLANT
     Route: 048
     Dates: start: 20110530
  2. NEORAL [Concomitant]
     Dates: start: 20110528
  3. VALCYTE [Suspect]
     Indication: RENAL TRANSPLANT
     Dates: start: 20110529

REACTIONS (1)
  - DEATH [None]
